FAERS Safety Report 7314496-9 (Version None)
Quarter: 2011Q1

REPORT INFORMATION
  Report Type: 
  Country: None (occurrence: None)
  Receive Date: 20110225
  Receipt Date: 20100914
  Transmission Date: 20110831
  Serious: Yes (Other)
  Sender: FDA-Public Use
  Company Number: US-MYLANLABS-2010S1016799

PATIENT
  Age: 24 Year
  Sex: Male
  Weight: 81.65 kg

DRUGS (3)
  1. AMNESTEEM [Suspect]
     Indication: ACNE
     Dates: start: 20100716, end: 20100903
  2. BACTRIM [Concomitant]
  3. MULTI-VITAMIN [Concomitant]

REACTIONS (1)
  - THROMBOCYTOPENIA [None]
